FAERS Safety Report 23409573 (Version 1)
Quarter: 2024Q1

REPORT INFORMATION
  Report Type: Spontaneous
  Country: JP (occurrence: JP)
  Receive Date: 20240117
  Receipt Date: 20240117
  Transmission Date: 20240410
  Serious: Yes (Other)
  Sender: FDA-Public Use
  Company Number: JP-PFIZER INC-PV202400005276

PATIENT
  Age: 80 Year
  Sex: Male

DRUGS (3)
  1. OXALIPLATIN [Suspect]
     Active Substance: OXALIPLATIN
     Indication: Gastric cancer stage III
     Dosage: 85 MG/M2,CYCLIC (REDUCED BY TWO LEVELS)
  2. TS-1 [Suspect]
     Active Substance: GIMERACIL\OTERACIL POTASSIUM\TEGAFUR
     Indication: Gastric cancer stage III
     Dosage: 100 MG, DAILY (REDUCED BY ONE LEVEL)
  3. NIVOLUMAB [Suspect]
     Active Substance: NIVOLUMAB
     Indication: Gastric cancer stage III
     Dosage: UNK

REACTIONS (2)
  - Neuropathy peripheral [Recovered/Resolved]
  - Dermatitis [Recovered/Resolved]
